FAERS Safety Report 10549217 (Version 1)
Quarter: 2014Q4

REPORT INFORMATION
  Report Type: Report from Study
  Country: BR (occurrence: BR)
  Receive Date: 20141028
  Receipt Date: 20141028
  Transmission Date: 20150529
  Serious: Yes (Hospitalization, Other)
  Sender: FDA-Public Use
  Company Number: PHHY2014BR140477

PATIENT
  Age: 88 Year
  Sex: Female
  Weight: 48 kg

DRUGS (3)
  1. QUETIAPINE FUMARATE. [Concomitant]
     Active Substance: QUETIAPINE FUMARATE
     Indication: ANXIOLYTIC THERAPY
     Dosage: 2 DF, BID (AT 6.00 PM, IF THE COMPULSION PERSISTING GIVE ANOTHER TABLET AT 10.00PM)
     Route: 065
     Dates: start: 201407
  2. EXELON PATCH [Suspect]
     Active Substance: RIVASTIGMINE
     Indication: DEMENTIA ALZHEIMER^S TYPE
     Dosage: 1 DF, BID
     Route: 062
     Dates: end: 201306
  3. EXELON [Suspect]
     Active Substance: RIVASTIGMINE TARTRATE
     Indication: DEMENTIA ALZHEIMER^S TYPE
     Dosage: 1 DF, BID (IN THE MORNING AND AT NIGHT)
     Route: 065
     Dates: start: 201307, end: 201402

REACTIONS (5)
  - Feeding disorder [Unknown]
  - Fall [Recovering/Resolving]
  - Vomiting [Unknown]
  - Rib fracture [Recovering/Resolving]
  - Gastric disorder [Unknown]

NARRATIVE: CASE EVENT DATE: 201402
